FAERS Safety Report 6392493-8 (Version None)
Quarter: 2009Q4

REPORT INFORMATION
  Report Type: 
  Country: None (occurrence: None)
  Receive Date: 20091007
  Receipt Date: 20090929
  Transmission Date: 20100525
  Serious: Yes (Death, Hospitalization, Other)
  Sender: FDA-Public Use
  Company Number: US-BAXTER-2009BH014985

PATIENT
  Sex: Female

DRUGS (6)
  1. HEPARIN SODIUM INJECTION [Suspect]
     Indication: CATHETERISATION CARDIAC
     Route: 065
     Dates: start: 20071013
  2. HEPARIN SODIUM INJECTION [Suspect]
     Indication: CORONARY ARTERY BYPASS
     Route: 065
     Dates: start: 20071013
  3. HEPARIN SODIUM INJECTION [Suspect]
     Route: 065
     Dates: start: 20071014
  4. HEPARIN SODIUM INJECTION [Suspect]
     Route: 065
     Dates: start: 20071014
  5. HEPARIN SODIUM INJECTION [Suspect]
     Route: 065
     Dates: start: 20071023
  6. HEPARIN SODIUM INJECTION [Suspect]
     Route: 065
     Dates: start: 20071023

REACTIONS (9)
  - ARTERIAL THROMBOSIS [None]
  - DEATH [None]
  - GENERALISED OEDEMA [None]
  - HEPARIN-INDUCED THROMBOCYTOPENIA [None]
  - LIVEDO RETICULARIS [None]
  - LIVER FUNCTION TEST ABNORMAL [None]
  - OEDEMA PERIPHERAL [None]
  - PERIPHERAL ISCHAEMIA [None]
  - RESPIRATORY FAILURE [None]
